FAERS Safety Report 7070784-5 (Version None)
Quarter: 2010Q4

REPORT INFORMATION
  Report Type: 
  Country: None (occurrence: None)
  Receive Date: 20101029
  Receipt Date: 20101021
  Transmission Date: 20110411
  Serious: Yes (Other)
  Sender: FDA-Public Use
  Company Number: US-BAYER-201038350NA

PATIENT
  Age: 22 Year
  Sex: Female

DRUGS (1)
  1. YAZ [Suspect]
     Indication: PRODUCT USED FOR UNKNOWN INDICATION
     Route: 048
     Dates: start: 20071101, end: 20080301

REACTIONS (3)
  - GALLBLADDER DISORDER [None]
  - PAIN [None]
  - POST CHOLECYSTECTOMY SYNDROME [None]
